FAERS Safety Report 12416287 (Version 1)
Quarter: 2016Q2

REPORT INFORMATION
  Report Type: Spontaneous
  Country: US (occurrence: US)
  Receive Date: 20160530
  Receipt Date: 20160530
  Transmission Date: 20160815
  Serious: Yes (Other)
  Sender: FDA-Public Use
  Company Number: US-PFIZER INC-2016279645

PATIENT
  Age: 64 Year
  Sex: Female
  Weight: 127 kg

DRUGS (2)
  1. PRISTIQ EXTENDED-RELEASE [Suspect]
     Active Substance: DESVENLAFAXINE SUCCINATE
     Dosage: ^100^, UNK
  2. PRISTIQ EXTENDED-RELEASE [Suspect]
     Active Substance: DESVENLAFAXINE SUCCINATE
     Indication: DEPRESSION
     Dosage: ^50^, UNK

REACTIONS (4)
  - Feeling abnormal [Recovering/Resolving]
  - Prescription drug used without a prescription [Unknown]
  - Hallucination [Unknown]
  - Drug ineffective [Recovering/Resolving]
